FAERS Safety Report 4506795-0 (Version None)
Quarter: 2004Q4

REPORT INFORMATION
  Report Type: 
  Country: None (occurrence: None)
  Receive Date: 20041117
  Receipt Date: 20041101
  Transmission Date: 20050328
  Serious: Yes (Other)
  Sender: FDA-Public Use
  Company Number: 199421

PATIENT
  Age: 30 Year
  Sex: Female

DRUGS (4)
  1. AVONEX [Suspect]
     Indication: MULTIPLE SCLEROSIS
     Dosage: 30 QW IM
     Route: 030
     Dates: start: 20040301, end: 20040601
  2. SOLU-MEDROL [Concomitant]
  3. IBUPROFEN [Concomitant]
  4. TYLENOL (CAPLET) [Concomitant]

REACTIONS (2)
  - CEREBRAL HAEMORRHAGE [None]
  - HAEMATOMA [None]
